FAERS Safety Report 9718022 (Version 1)
Quarter: 2013Q4

REPORT INFORMATION
  Report Type: Spontaneous
  Country: US (occurrence: US)
  Receive Date: 20131125
  Receipt Date: 20131125
  Transmission Date: 20140711
  Serious: No
  Sender: FDA-Public Use
  Company Number: US-VIVUS-2013V1000438

PATIENT
  Age: 76 Year
  Sex: Female

DRUGS (16)
  1. QSYMIA 3.75MG/23MG [Suspect]
     Indication: WEIGHT DECREASED
     Route: 048
     Dates: start: 201306
  2. NEXIUM [Concomitant]
     Indication: GASTROOESOPHAGEAL REFLUX DISEASE
     Dosage: STARTED YEARS AGO
     Route: 048
  3. SYNTHROID [Concomitant]
     Indication: THYROID DISORDER
     Dosage: STARTED APPROXIMATELY ONE YEAR AGO
     Route: 048
  4. SINGULAIR [Concomitant]
     Indication: ASTHMA
     Dosage: STARTED APPROXIMATELY 5 YEARS AGO
     Route: 048
  5. ALBUTEROL INHALER [Concomitant]
     Indication: ASTHMA
  6. VICTOZA [Concomitant]
     Indication: DIABETES MELLITUS
     Route: 058
  7. AMLODIPINE [Concomitant]
     Indication: HYPERTENSION
     Route: 048
  8. LOSARTAN [Concomitant]
     Indication: HYPERTENSION
     Dosage: 100MG/25MG
     Route: 048
  9. ZETIA [Concomitant]
     Indication: BLOOD CHOLESTEROL
     Route: 048
  10. PLAQUENIL [Concomitant]
     Indication: ARTHRITIS
     Route: 048
  11. SULFAZINE [Concomitant]
     Indication: ARTHRITIS
     Route: 048
  12. FISH OIL [Concomitant]
     Indication: PRODUCT USED FOR UNKNOWN INDICATION
  13. FOLIC ACID [Concomitant]
     Indication: PRODUCT USED FOR UNKNOWN INDICATION
  14. CALCIUM [Concomitant]
     Indication: PRODUCT USED FOR UNKNOWN INDICATION
     Route: 048
  15. VOLTAREN [Concomitant]
     Indication: ARTHRITIS
     Route: 048
  16. REMICADE [Concomitant]
     Indication: ARTHRITIS
     Route: 042

REACTIONS (2)
  - Blood glucose decreased [Not Recovered/Not Resolved]
  - Dizziness [Not Recovered/Not Resolved]
